FAERS Safety Report 11835858 (Version 4)
Quarter: 2016Q2

REPORT INFORMATION
  Report Type: Report from Study
  Country: DE (occurrence: DE)
  Receive Date: 20151215
  Receipt Date: 20160620
  Transmission Date: 20160815
  Serious: Yes (Hospitalization, Other)
  Sender: FDA-Public Use
  Company Number: PHHY2015DE163555

PATIENT
  Age: 63 Year
  Sex: Male
  Weight: 110 kg

DRUGS (8)
  1. BETADERMIC [Concomitant]
     Indication: RASH
     Dosage: 2 DF, QD
     Route: 061
     Dates: start: 20010212
  2. COSENTYX [Suspect]
     Active Substance: SECUKINUMAB
     Dosage: 300 MG, PER APPLICATION
     Route: 065
     Dates: start: 20151202, end: 20151202
  3. INSULIN [Concomitant]
     Active Substance: INSULIN NOS
     Indication: TYPE 2 DIABETES MELLITUS
     Dosage: ACCORDING TO BLOOD SUGAR
     Route: 058
     Dates: start: 20140101
  4. COSENTYX [Suspect]
     Active Substance: SECUKINUMAB
     Dosage: 300 MG,  PER APPLICATION
     Route: 065
     Dates: start: 20151125
  5. BETAGALEN CREME [Concomitant]
     Indication: PRURITUS
     Dosage: 1 DF, QD
     Route: 061
     Dates: start: 19981009
  6. PREDNISOLONE. [Concomitant]
     Active Substance: PREDNISOLONE
     Indication: RHEUMATIC DISORDER
     Dosage: 5 MG, QD
     Route: 048
     Dates: start: 20150601
  7. COSENTYX [Suspect]
     Active Substance: SECUKINUMAB
     Indication: PSORIASIS
     Dosage: 300 MG,  PER APPLICATION
     Route: 065
     Dates: start: 20151111
  8. COSENTYX [Suspect]
     Active Substance: SECUKINUMAB
     Dosage: 300 MG,  PER APPLICATION
     Route: 065
     Dates: start: 20151118

REACTIONS (2)
  - Hypertension [Not Recovered/Not Resolved]
  - Cerebrovascular accident [Recovered/Resolved with Sequelae]

NARRATIVE: CASE EVENT DATE: 20151203
